FAERS Safety Report 24943246 (Version 1)
Quarter: 2025Q1

REPORT INFORMATION
  Report Type: Spontaneous
  Country: US (occurrence: US)
  Receive Date: 20250207
  Receipt Date: 20250207
  Transmission Date: 20250409
  Serious: Yes (Other)
  Sender: ROCHE
  Company Number: US-ROCHE-10000195069

PATIENT
  Age: 40 Year
  Sex: Male

DRUGS (2)
  1. OCREVUS [Suspect]
     Active Substance: OCRELIZUMAB
     Indication: Multiple sclerosis
     Route: 065
     Dates: start: 2018, end: 202407
  2. LEMTRADA [Suspect]
     Active Substance: ALEMTUZUMAB
     Indication: Product used for unknown indication
     Route: 065

REACTIONS (3)
  - Quadriplegia [Not Recovered/Not Resolved]
  - Blindness [Not Recovered/Not Resolved]
  - Product dose omission issue [Unknown]

NARRATIVE: CASE EVENT DATE: 20250120
